FAERS Safety Report 5106838-X (Version None)
Quarter: 2006Q3

REPORT INFORMATION
  Report Type: 
  Country: None (occurrence: None)
  Receive Date: 20060912
  Receipt Date: 20060901
  Transmission Date: 20061208
  Serious: Yes (Hospitalization, Other)
  Sender: FDA-Public Use
  Company Number: HQWYE002517JUL06

PATIENT
  Age: 62 Year
  Sex: Male

DRUGS (1)
  1. ROFERON-A [Suspect]
     Indication: RENAL CELL CARCINOMA STAGE UNSPECIFIED
     Dosage: 18 MU 3 PER WEEK SC
     Route: 058
     Dates: start: 20040616

REACTIONS (4)
  - AMNESIA [None]
  - COGNITIVE DISORDER [None]
  - COORDINATION ABNORMAL [None]
  - REFUSAL OF TREATMENT BY PATIENT [None]
